FAERS Safety Report 6921049-0 (Version None)
Quarter: 2010Q3

REPORT INFORMATION
  Report Type: 
  Country: None (occurrence: None)
  Receive Date: 20100812
  Receipt Date: 20100803
  Transmission Date: 20110219
  Serious: Yes (Hospitalization)
  Sender: FDA-Public Use
  Company Number: GB-ROCHE-701714

PATIENT
  Sex: Male

DRUGS (6)
  1. BEVACIZUMAB [Suspect]
     Dosage: DATE OF LAST BEVACIZUMAB INFUSION PRIOR TO EVENT: 15 APRIL 2010.
     Route: 065
     Dates: start: 20091210
  2. OMEPRAZOLE [Concomitant]
     Indication: ILL-DEFINED DISORDER
     Dates: start: 20090101
  3. SIMVASTATIN [Concomitant]
     Dates: start: 20090101
  4. BENDROFLUAZIDE [Concomitant]
     Indication: HYPERTENSION
     Dates: start: 20100111
  5. RAMIPRIL [Concomitant]
     Indication: HYPERTENSION
     Dates: start: 20100125
  6. AMLODIPINE [Concomitant]
     Indication: HYPERTENSION
     Dates: start: 20100125

REACTIONS (1)
  - APPENDICITIS [None]
